FAERS Safety Report 19744403 (Version 1)
Quarter: 2021Q3

REPORT INFORMATION
  Report Type: Spontaneous
  Country: US (occurrence: US)
  Receive Date: 20210825
  Receipt Date: 20210825
  Transmission Date: 20211014
  Serious: No
  Sender: FDA-Public Use
  Company Number: US-PERRIGO-21US003683

PATIENT
  Age: 55 Year
  Sex: Female
  Weight: 53.52 kg

DRUGS (4)
  1. EVAMIST [Suspect]
     Active Substance: ESTRADIOL
     Indication: MENOPAUSE
     Dosage: 1.53 MG, QD
     Route: 062
     Dates: start: 20201231, end: 202101
  2. PROGESTERONE. [Concomitant]
     Active Substance: PROGESTERONE
     Indication: MENOPAUSE
     Dosage: UNKNOWN, UNKNOWN
     Route: 065
     Dates: start: 2018, end: 202101
  3. EVAMIST [Suspect]
     Active Substance: ESTRADIOL
     Dosage: 1.53 MG, QOD
     Route: 062
     Dates: start: 202101, end: 202101
  4. LEXAPRO [Concomitant]
     Active Substance: ESCITALOPRAM OXALATE
     Indication: ANXIETY
     Dosage: 2.5 MG, UNKNOWN
     Route: 065
     Dates: start: 2020

REACTIONS (3)
  - Irritability [Recovered/Resolved]
  - Anxiety [Recovered/Resolved]
  - Hot flush [Recovered/Resolved]

NARRATIVE: CASE EVENT DATE: 20201231
